FAERS Safety Report 9155402 (Version 1)
Quarter: 2013Q1

REPORT INFORMATION
  Report Type: Spontaneous
  Country: IT (occurrence: IT)
  Receive Date: 20130311
  Receipt Date: 20130311
  Transmission Date: 20140127
  Serious: Yes (Other)
  Sender: FDA-Public Use
  Company Number: IT-ASTRAZENECA-2013SE14226

PATIENT
  Age: 67 Year
  Sex: Female

DRUGS (2)
  1. BRILIQUE [Suspect]
     Route: 048
  2. CONGESCOR (BISOPROLOL) [Concomitant]

REACTIONS (1)
  - Atrioventricular dissociation [Recovered/Resolved]
